FAERS Safety Report 5960300-0 (Version None)
Quarter: 2008Q4

REPORT INFORMATION
  Report Type: 
  Country: None (occurrence: None)
  Receive Date: 20081118
  Receipt Date: 20081103
  Transmission Date: 20090506
  Serious: No
  Sender: FDA-Public Use
  Company Number: B0545635A

PATIENT
  Age: 59 Year
  Sex: Male

DRUGS (1)
  1. CHLORPROMAZINE [Suspect]

REACTIONS (5)
  - ANGLE CLOSURE GLAUCOMA [None]
  - CATARACT [None]
  - DEPOSIT EYE [None]
  - PHOTOPHOBIA [None]
  - VISUAL ACUITY REDUCED [None]
